FAERS Safety Report 9861225 (Version 2)
Quarter: 2014Q1

REPORT INFORMATION
  Report Type: Spontaneous
  Country: US (occurrence: US)
  Receive Date: 20140202
  Receipt Date: 20140202
  Transmission Date: 20141002
  Serious: No
  Sender: FDA-Public Use
  Company Number: US-ALLERGAN-1304132US

PATIENT
  Sex: Female

DRUGS (1)
  1. BOTOX [Suspect]
     Indication: INTERVERTEBRAL DISC PROTRUSION
     Dosage: UNK, SINGLE
     Route: 030

REACTIONS (2)
  - Sensory loss [Unknown]
  - Off label use [Unknown]
